FAERS Safety Report 9157265 (Version 2)
Quarter: 2013Q2

REPORT INFORMATION
  Report Type: Spontaneous
  Country: IL (occurrence: IL)
  Receive Date: 20130312
  Receipt Date: 20130430
  Transmission Date: 20140414
  Serious: Yes (Other)
  Sender: FDA-Public Use
  Company Number: IL-JNJFOC-20130303191

PATIENT
  Age: 4 Decade
  Sex: Female

DRUGS (1)
  1. PREZISTA [Suspect]
     Indication: HIV CARRIER
     Route: 048

REACTIONS (1)
  - Exposure during pregnancy [Unknown]
